FAERS Safety Report 15453876 (Version 7)
Quarter: 2018Q4

REPORT INFORMATION
  Report Type: Report from Study
  Country: DE (occurrence: DE)
  Receive Date: 20181001
  Receipt Date: 20181202
  Transmission Date: 20190204
  Serious: Yes (Life-Threatening, Hospitalization)
  Sender: FDA-Public Use
  Company Number: PHHY2018DE104440

PATIENT
  Age: 66 Year
  Sex: Male
  Weight: 97 kg

DRUGS (4)
  1. ENTRESTO [Suspect]
     Active Substance: SACUBITRIL\VALSARTAN
     Dosage: 1 DF (SACUBITRIL 49 MG AND VALSARTAN 51 MG), BID
     Route: 048
     Dates: start: 20180920, end: 20181012
  2. ENTRESTO [Suspect]
     Active Substance: SACUBITRIL\VALSARTAN
     Dosage: 1 DF (SACUBITRIL 49 MG AND VALSARTAN 51 MG), QD
     Route: 048
     Dates: start: 20180608, end: 20180919
  3. ENTRESTO [Suspect]
     Active Substance: SACUBITRIL\VALSARTAN
     Indication: CARDIAC FAILURE CHRONIC
     Dosage: 1 DF (SACUBITRIL 24 MG/ VALSARTAN 26 MG ), BID
     Route: 048
     Dates: start: 20180507, end: 20180607
  4. ENTRESTO [Suspect]
     Active Substance: SACUBITRIL\VALSARTAN
     Dosage: 1 DF (49/51 MG), QD (1-0-0)
     Route: 048
     Dates: start: 20181013

REACTIONS (6)
  - Cardiac failure [Recovered/Resolved with Sequelae]
  - Fibrin D dimer increased [Not Recovered/Not Resolved]
  - Product prescribing error [Unknown]
  - Myoglobin blood increased [Recovering/Resolving]
  - Hypotension [Recovered/Resolved]
  - Vertigo [Recovered/Resolved]

NARRATIVE: CASE EVENT DATE: 201809
